FAERS Safety Report 4662870-1 (Version None)
Quarter: 2005Q2

REPORT INFORMATION
  Report Type: 
  Country: None (occurrence: None)
  Receive Date: 20050502
  Receipt Date: 20050214
  Transmission Date: 20051028
  Serious: No
  Sender: FDA-Public Use
  Company Number: 200510920US

PATIENT
  Age: 43 Year
  Sex: Female

DRUGS (5)
  1. KETEK [Suspect]
     Indication: SINUSITIS
     Dosage: 800 MG/DAY PO
     Route: 048
     Dates: start: 20050129, end: 20050131
  2. METHOTREXATE [Concomitant]
  3. PREDNISONE TAB [Concomitant]
  4. REMICADE [Concomitant]
  5. SYNTHROID [Concomitant]

REACTIONS (3)
  - DIPLOPIA [None]
  - VISION BLURRED [None]
  - VISUAL DISTURBANCE [None]
